FAERS Safety Report 17997674 (Version 1)
Quarter: 2020Q3

REPORT INFORMATION
  Report Type: Spontaneous
  Country: US (occurrence: US)
  Receive Date: 20200708
  Receipt Date: 20200708
  Transmission Date: 20201103
  Serious: Yes (Hospitalization, Other)
  Sender: FDA-Public Use
  Company Number: US-NAPPMUNDI-USA-2020-0152007

PATIENT
  Sex: Male

DRUGS (2)
  1. MS CONTIN [Suspect]
     Active Substance: MORPHINE SULFATE
     Indication: PAIN
     Dosage: 60 MG, TID
     Route: 048
  2. MS CONTIN [Suspect]
     Active Substance: MORPHINE SULFATE
     Dosage: 45 MG, TID
     Route: 048

REACTIONS (11)
  - Quality of life decreased [Unknown]
  - Emotional poverty [Unknown]
  - Overdose [Unknown]
  - Therapeutic product effect decreased [Unknown]
  - Amnesia [Unknown]
  - Diarrhoea [Unknown]
  - Fall [Unknown]
  - Abnormal dreams [Unknown]
  - Head injury [Unknown]
  - Syncope [Unknown]
  - Loss of libido [Unknown]
